FAERS Safety Report 12761015 (Version 1)
Quarter: 2016Q3

REPORT INFORMATION
  Report Type: Spontaneous
  Country: US (occurrence: US)
  Receive Date: 20160919
  Receipt Date: 20160919
  Transmission Date: 20161109
  Serious: No
  Sender: FDA-Public Use
  Company Number: US-AMGEN-USASP2016114536

PATIENT
  Age: 55 Year
  Sex: Female

DRUGS (1)
  1. ENBREL [Suspect]
     Active Substance: ETANERCEPT
     Indication: RHEUMATOID ARTHRITIS
     Dosage: 50 MG, ONCE EVERY 2 WEEKS
     Route: 065
     Dates: start: 20160814

REACTIONS (2)
  - Intentional product misuse [Unknown]
  - Corrective lens user [Unknown]

NARRATIVE: CASE EVENT DATE: 20160814
